FAERS Safety Report 10553466 (Version 2)
Quarter: 2014Q4

REPORT INFORMATION
  Report Type: Spontaneous
  Country: US (occurrence: US)
  Receive Date: 20141030
  Receipt Date: 20141031
  Transmission Date: 20150529
  Serious: No
  Sender: FDA-Public Use
  Company Number: US-009507513-1410USA013901

PATIENT
  Age: 21 Year
  Sex: Female
  Weight: 76.19 kg

DRUGS (2)
  1. NEXPLANON [Suspect]
     Active Substance: ETONOGESTREL
     Indication: CONTRACEPTION
     Dosage: ONE ROD FOR THREE YEARS
     Route: 059
     Dates: start: 20140502
  2. ATIVAN [Concomitant]
     Active Substance: LORAZEPAM

REACTIONS (3)
  - Implant site erythema [Not Recovered/Not Resolved]
  - Device kink [Not Recovered/Not Resolved]
  - Implant site pain [Not Recovered/Not Resolved]

NARRATIVE: CASE EVENT DATE: 20141024
